FAERS Safety Report 11347317 (Version 2)
Quarter: 2015Q3

REPORT INFORMATION
  Report Type: Spontaneous
  Country: GB (occurrence: GB)
  Receive Date: 20150806
  Receipt Date: 20150814
  Transmission Date: 20151125
  Serious: Yes (Other)
  Sender: FDA-Public Use
  Company Number: GB-PFIZER INC-2015258013

PATIENT
  Age: 58 Year
  Sex: Male

DRUGS (2)
  1. DEPO-MEDRONE [Suspect]
     Active Substance: METHYLPREDNISOLONE
     Indication: ARTHRALGIA
     Dosage: UNK
     Route: 030
     Dates: start: 20150307, end: 20150307
  2. EPINEPHRINE. [Suspect]
     Active Substance: EPINEPHRINE
     Dosage: UNK

REACTIONS (3)
  - Circulatory collapse [Unknown]
  - Anxiety [Unknown]
  - Confusional state [Unknown]
